FAERS Safety Report 13734781 (Version 1)
Quarter: 2017Q3

REPORT INFORMATION
  Report Type: Spontaneous
  Country: US (occurrence: US)
  Receive Date: 20170710
  Receipt Date: 20170710
  Transmission Date: 20171127
  Serious: Yes (Other)
  Sender: FDA-Public Use
  Company Number: US-TORRENT-00003164

PATIENT
  Age: 64 Year
  Sex: Male

DRUGS (2)
  1. CLOPIDOGREL [Suspect]
     Active Substance: CLOPIDOGREL BISULFATE
  2. ACETYLSALICYLIC ACID [Suspect]
     Active Substance: ASPIRIN

REACTIONS (3)
  - Exophthalmos [Unknown]
  - Conjunctival oedema [Unknown]
  - Paralysis [Unknown]
